FAERS Safety Report 19472206 (Version 1)
Quarter: 2021Q2

REPORT INFORMATION
  Report Type: Spontaneous
  Country: PL (occurrence: PL)
  Receive Date: 20210629
  Receipt Date: 20210629
  Transmission Date: 20210717
  Serious: Yes (Hospitalization, Other)
  Sender: FDA-Public Use
  Company Number: PL-CHEPLA-C20213180

PATIENT
  Age: 6 Year
  Sex: Male

DRUGS (10)
  1. CYCLOSPORINE. [Suspect]
     Active Substance: CYCLOSPORINE
  2. GANCICLOVIR. [Suspect]
     Active Substance: GANCICLOVIR
     Indication: CYTOMEGALOVIRUS INFECTION
     Dosage: UNK, STOPPED ON DAY 8 BEFORE HSCT
     Dates: start: 201812
  3. TREOSULFAN [Suspect]
     Active Substance: TREOSULFAN
     Indication: BONE MARROW CONDITIONING REGIMEN
  4. DEXAMETHASONE. [Suspect]
     Active Substance: DEXAMETHASONE
  5. ANTI?THYMOCYTE GLOBULIN (RABBIT) NOS [Suspect]
     Active Substance: LAPINE T-LYMPHOCYTE IMMUNE GLOBULIN
  6. METHOTREXATE. [Suspect]
     Active Substance: METHOTREXATE
  7. FOSCARNET [Suspect]
     Active Substance: FOSCARNET
  8. CIDOFOVIR. [Suspect]
     Active Substance: CIDOFOVIR
  9. CYCLOPHOSPHAMIDE. [Suspect]
     Active Substance: CYCLOPHOSPHAMIDE
     Indication: BONE MARROW CONDITIONING REGIMEN
  10. RITUXIMAB. [Suspect]
     Active Substance: RITUXIMAB

REACTIONS (9)
  - Renal disorder [Unknown]
  - Product use issue [Unknown]
  - Respiratory failure [Unknown]
  - Haemophagocytic lymphohistiocytosis [Unknown]
  - Immune thrombocytopenia [Unknown]
  - Mucosal inflammation [Unknown]
  - Hepatic failure [Unknown]
  - Acute graft versus host disease [Recovered/Resolved]
  - Epstein-Barr virus infection reactivation [Recovered/Resolved]

NARRATIVE: CASE EVENT DATE: 201808
